FAERS Safety Report 17778109 (Version 1)
Quarter: 2020Q2

REPORT INFORMATION
  Report Type: Report from Study
  Country: None (occurrence: CO)
  Receive Date: 20200513
  Receipt Date: 20200513
  Transmission Date: 20200714
  Serious: Yes (Death)
  Sender: FDA-Public Use
  Company Number: CO-ABBVIE-20K-036-3401303-00

PATIENT
  Age: 62 Year
  Sex: Female
  Weight: 75 kg

DRUGS (1)
  1. ZEMPLAR [Suspect]
     Active Substance: PARICALCITOL
     Indication: HYPERPARATHYROIDISM SECONDARY
     Route: 042
     Dates: start: 20180822, end: 20191206

REACTIONS (4)
  - Mobility decreased [Fatal]
  - Cerebrovascular accident [Fatal]
  - Aphasia [Fatal]
  - Brain injury [Fatal]

NARRATIVE: CASE EVENT DATE: 20200429
